FAERS Safety Report 8069152-9 (Version None)
Quarter: 2012Q1

REPORT INFORMATION
  Report Type: 
  Country: None (occurrence: None)
  Receive Date: 20120125
  Receipt Date: 20120123
  Transmission Date: 20120608
  Serious: No
  Sender: FDA-Public Use
  Company Number: US-PFIZER INC-2012018700

PATIENT
  Age: 88 Year
  Sex: Female

DRUGS (2)
  1. ALPRAZOLAM [Suspect]
     Dosage: UNK
  2. XANAX XR [Suspect]
     Dosage: UNK

REACTIONS (3)
  - DRUG EFFECT DECREASED [None]
  - PRODUCT SOLUBILITY ABNORMAL [None]
  - SOMNOLENCE [None]
